FAERS Safety Report 5235065-0 (Version None)
Quarter: 2007Q1

REPORT INFORMATION
  Report Type: 
  Country: None (occurrence: None)
  Receive Date: 20070207
  Receipt Date: 20070126
  Transmission Date: 20070707
  Serious: Yes (Other)
  Sender: FDA-Public Use
  Company Number: TPA2007A00165

PATIENT

DRUGS (1)
  1. ACTOS [Suspect]
     Dosage: UNK., UNKNOWN, PER ORAL
     Route: 048

REACTIONS (1)
  - PULMONARY OEDEMA [None]
